FAERS Safety Report 7824679-7 (Version None)
Quarter: 2011Q4

REPORT INFORMATION
  Report Type: 
  Country: None (occurrence: None)
  Receive Date: 20111019
  Receipt Date: 20111005
  Transmission Date: 20120403
  Serious: Yes (Other)
  Sender: FDA-Public Use
  Company Number: PHHY2011CH91109

PATIENT
  Sex: Female

DRUGS (1)
  1. ZOLEDRONOC ACID [Suspect]
     Dosage: UNK UKN, UNK
     Route: 042
     Dates: start: 20110920

REACTIONS (8)
  - JOINT SWELLING [None]
  - ARTHRALGIA [None]
  - CRYSTAL ARTHROPATHY [None]
  - C-REACTIVE PROTEIN INCREASED [None]
  - ASTHENIA [None]
  - FATIGUE [None]
  - GOUT [None]
  - ARTHRITIS [None]
